FAERS Safety Report 8628356 (Version 2)
Quarter: 2013Q2

REPORT INFORMATION
  Report Type: Report from Study
  Country: AR (occurrence: AR)
  Receive Date: 20120621
  Receipt Date: 20130417
  Transmission Date: 20140414
  Serious: Yes (Other)
  Sender: FDA-Public Use
  Company Number: PHHY2012AR052470

PATIENT
  Age: 52 Year
  Sex: Female

DRUGS (2)
  1. ONBREZ [Suspect]
     Indication: ASTHMA
     Dosage: 150 UG, DAILY
  2. ONBREZ [Suspect]
     Indication: OFF LABEL USE

REACTIONS (1)
  - Tendon rupture [Recovered/Resolved]
